FAERS Safety Report 20228234 (Version 1)
Quarter: 2021Q4

REPORT INFORMATION
  Report Type: Spontaneous
  Country: SE (occurrence: SE)
  Receive Date: 20211224
  Receipt Date: 20211224
  Transmission Date: 20220303
  Serious: Yes (Other)
  Sender: FDA-Public Use
  Company Number: SE-MPA-1613470116998

PATIENT
  Age: 37 Year
  Sex: Female

DRUGS (14)
  1. DUPIXENT [Suspect]
     Active Substance: DUPILUMAB
     Indication: Asthma
     Dosage: UNK, QOW
     Route: 058
     Dates: start: 20201204, end: 20210215
  2. ECOVAG [Concomitant]
     Dates: start: 20200528
  3. BETNOVAT [BECLOMETASONE DIPROPIONATE] [Concomitant]
     Dates: start: 2017
  4. MINIDERM [GLYCEROL] [Concomitant]
     Dates: start: 2017
  5. MIRENA [Concomitant]
     Active Substance: LEVONORGESTREL
     Dates: start: 2020
  6. BECLOMETHASONE DIPROPIONATE\FORMOTEROL FUMARATE\GLYCOPYRROLATE [Concomitant]
     Active Substance: BECLOMETHASONE DIPROPIONATE\FORMOTEROL FUMARATE\GLYCOPYRROLATE
     Dates: start: 20180313
  7. DESLORATADINE [Concomitant]
     Active Substance: DESLORATADINE
     Dates: start: 2017
  8. ETOVEX [Concomitant]
     Dates: start: 2017
  9. MONTELUKAST [Concomitant]
     Active Substance: MONTELUKAST SODIUM
     Dates: start: 2017
  10. ZADITEN [Concomitant]
     Active Substance: KETOTIFEN FUMARATE
     Dates: start: 2018
  11. FOLSYRA ORIFARM [Concomitant]
     Dates: start: 2019
  12. DERMOVAT [BETAMETHASONE VALERATE] [Concomitant]
     Dates: start: 2017
  13. KETOCONAZOLE [Concomitant]
     Active Substance: KETOCONAZOLE
     Dates: start: 2017
  14. DYMISTA [Concomitant]
     Active Substance: AZELASTINE HYDROCHLORIDE\FLUTICASONE PROPIONATE
     Dates: start: 2019

REACTIONS (1)
  - Angioedema [Not Recovered/Not Resolved]

NARRATIVE: CASE EVENT DATE: 20210115
